FAERS Safety Report 12557492 (Version 1)
Quarter: 2016Q3

REPORT INFORMATION
  Report Type: Spontaneous
  Country: US (occurrence: US)
  Receive Date: 20160714
  Receipt Date: 20160714
  Transmission Date: 20161109
  Serious: No
  Sender: FDA-Public Use
  Company Number: US-PFIZER INC-2016340105

PATIENT
  Age: 70 Year
  Sex: Female

DRUGS (3)
  1. LYRICA [Suspect]
     Active Substance: PREGABALIN
     Indication: ARTHRITIS
     Dosage: 50 MG, UNK
  2. LYRICA [Suspect]
     Active Substance: PREGABALIN
     Dosage: 75MG TWO CAPSULES EVERY MORNING, ONE CAPSULE MIDDAY AND ONE CAPSULE AT NIGHT
     Route: 048
  3. LYRICA [Suspect]
     Active Substance: PREGABALIN
     Indication: DERMATOMYOSITIS
     Dosage: 6 TO 8 CAPSULES A DAY

REACTIONS (2)
  - Product use issue [Not Recovered/Not Resolved]
  - Body height decreased [Unknown]
